FAERS Safety Report 7654510-4 (Version None)
Quarter: 2011Q3

REPORT INFORMATION
  Report Type: 
  Country: None (occurrence: None)
  Receive Date: 20110803
  Receipt Date: 20110725
  Transmission Date: 20111222
  Serious: Yes (Other)
  Sender: FDA-Public Use
  Company Number: FR-ASTRAZENECA-2011SE43748

PATIENT
  Age: 68 Year
  Sex: Male

DRUGS (4)
  1. ATORVASTATIN CALCIUM [Suspect]
     Indication: DYSLIPIDAEMIA
     Route: 048
     Dates: start: 20050101, end: 20050101
  2. TENORMIN [Suspect]
     Route: 048
     Dates: start: 20050101
  3. PRAVASTATIN [Suspect]
     Indication: DYSLIPIDAEMIA
     Route: 048
     Dates: start: 20050101, end: 20050101
  4. MEDIATOR [Concomitant]
     Indication: OVERWEIGHT
     Route: 048
     Dates: start: 20060308, end: 20080101

REACTIONS (3)
  - GAIT DISTURBANCE [None]
  - FATIGUE [None]
  - DYSPNOEA [None]
